FAERS Safety Report 6456641-3 (Version None)
Quarter: 2009Q4

REPORT INFORMATION
  Report Type: 
  Country: None (occurrence: None)
  Receive Date: 20091124
  Receipt Date: 20091124
  Transmission Date: 20100525
  Serious: No
  Sender: FDA-Public Use
  Company Number: None

PATIENT
  Sex: Male
  Weight: 106.5 kg

DRUGS (1)
  1. TAXOTERE [Suspect]
     Dosage: 177 MG

REACTIONS (3)
  - FULL BLOOD COUNT ABNORMAL [None]
  - HAEMATEMESIS [None]
  - NEUTROPENIA [None]
